FAERS Safety Report 12884570 (Version 2)
Quarter: 2016Q4

REPORT INFORMATION
  Report Type: Spontaneous
  Country: DE (occurrence: DE)
  Receive Date: 20161026
  Receipt Date: 20161228
  Transmission Date: 20170207
  Serious: Yes (Other)
  Sender: FDA-Public Use
  Company Number: DE-AMGEN-DEUSP2016148832

PATIENT
  Sex: Male
  Weight: 100 kg

DRUGS (3)
  1. IMLYGIC [Suspect]
     Active Substance: TALIMOGENE LAHERPAREPVEC
     Indication: METASTATIC MALIGNANT MELANOMA
     Dosage: UNK (10^3)
     Route: 026
     Dates: start: 20160915, end: 20160915
  2. IMLYGIC [Suspect]
     Active Substance: TALIMOGENE LAHERPAREPVEC
     Dosage: 4 ML, UNK (10^8 PFU 4 ML)
     Route: 026
     Dates: start: 20160929, end: 20161013
  3. IMLYGIC [Suspect]
     Active Substance: TALIMOGENE LAHERPAREPVEC
     Indication: MALIGNANT MELANOMA
     Dosage: 4 ML, UNK (10^6 PFU 4 ML)
     Route: 026
     Dates: start: 20160825, end: 20160825

REACTIONS (3)
  - Influenza like illness [Recovered/Resolved]
  - Metastases to lymph nodes [Not Recovered/Not Resolved]
  - Pyrexia [Recovered/Resolved]

NARRATIVE: CASE EVENT DATE: 20160825
